FAERS Safety Report 6655298-6 (Version None)
Quarter: 2010Q1

REPORT INFORMATION
  Report Type: 
  Country: None (occurrence: None)
  Receive Date: 20100318
  Receipt Date: 20090408
  Transmission Date: 20100710
  Serious: Yes (Other)
  Sender: FDA-Public Use
  Company Number: 2009196184

PATIENT
  Age: 67 Year
  Sex: Male
  Weight: 90.7194 kg

DRUGS (4)
  1. XALATAN [Suspect]
     Indication: OPEN ANGLE GLAUCOMA
     Dates: start: 20060101
  2. LUPRON [Concomitant]
  3. GLUCOSAMINE W/CHONDROITIN SULFATES (ASCORBIC ACID, CHONDROITIN SULFATE [Concomitant]
  4. PRAVASTATIN [Concomitant]

REACTIONS (3)
  - EYE DISORDER [None]
  - INSOMNIA [None]
  - INTRAOCULAR PRESSURE INCREASED [None]
